FAERS Safety Report 5533713-9 (Version None)
Quarter: 2007Q4

REPORT INFORMATION
  Report Type: 
  Country: None (occurrence: None)
  Receive Date: 20071204
  Receipt Date: 20071130
  Transmission Date: 20080405
  Serious: Yes (Other)
  Sender: FDA-Public Use
  Company Number: ES-BOEHRINGER INGELHEIM PHARMACEUTICALS, INC.-2007-ES-00176ES

PATIENT
  Age: 76 Year
  Sex: Female

DRUGS (6)
  1. MIRAPEXIN [Suspect]
     Indication: PARKINSON'S DISEASE
     Route: 048
     Dates: start: 20070920
  2. SOMAZINA [Suspect]
     Indication: VASCULAR ENCEPHALOPATHY
     Route: 030
     Dates: start: 20071031, end: 20071031
  3. INSULATARD FLEXPEN [Concomitant]
     Indication: DIABETES MELLITUS
  4. NOBRITOL [Concomitant]
     Indication: DEPRESSION
     Route: 048
     Dates: start: 19970101
  5. OMEPRAZOLE [Concomitant]
     Route: 048
     Dates: start: 20040101
  6. PLANTABEN [Concomitant]
     Indication: CONSTIPATION
     Route: 048
     Dates: start: 20070701

REACTIONS (4)
  - COORDINATION ABNORMAL [None]
  - HALLUCINATION [None]
  - SPEECH DISORDER [None]
  - VASCULAR ENCEPHALOPATHY [None]
